FAERS Safety Report 7901643-0 (Version None)
Quarter: 2011Q4

REPORT INFORMATION
  Report Type: 
  Country: None (occurrence: None)
  Receive Date: 20111104
  Receipt Date: 20110922
  Transmission Date: 20120403
  Serious: Yes (Other)
  Sender: FDA-Public Use
  Company Number: 2011AP002128

PATIENT
  Age: 67 Year
  Sex: Female

DRUGS (2)
  1. ABILIFY [Suspect]
     Dosage: 30 MG;UNKNOWN;BID
  2. LAMOTRIGINE [Suspect]

REACTIONS (5)
  - CONDITION AGGRAVATED [None]
  - DELUSION [None]
  - PSYCHOTIC DISORDER [None]
  - DEMENTIA [None]
  - DEPRESSION [None]
